FAERS Safety Report 7562156-1 (Version None)
Quarter: 2011Q2

REPORT INFORMATION
  Report Type: 
  Country: None (occurrence: None)
  Receive Date: 20110614
  Receipt Date: 20110531
  Transmission Date: 20111010
  Serious: Yes (Death, Life-Threatening, Hospitalization, Other)
  Sender: FDA-Public Use
  Company Number: 2011MA006581

PATIENT
  Age: 11 Year
  Sex: Female

DRUGS (1)
  1. BUPROPION HYDROCHLORIDE [Suspect]
     Dosage: 6 G, 1X, PO
     Route: 048

REACTIONS (14)
  - ELECTROCARDIOGRAM QRS COMPLEX PROLONGED [None]
  - HALLUCINATION, VISUAL [None]
  - CIRCULATORY COLLAPSE [None]
  - BRADYCARDIA [None]
  - CARDIAC ARREST [None]
  - RESPIRATORY DEPRESSION [None]
  - RESPIRATORY FAILURE [None]
  - MUSCLE FATIGUE [None]
  - AGITATION [None]
  - TACHYCARDIA [None]
  - CONVULSION [None]
  - CONFUSIONAL STATE [None]
  - LETHARGY [None]
  - INTENTIONAL OVERDOSE [None]
